FAERS Safety Report 22748701 (Version 5)
Quarter: 2023Q4

REPORT INFORMATION
  Report Type: Spontaneous
  Country: AR (occurrence: AR)
  Receive Date: 20230725
  Receipt Date: 20231130
  Transmission Date: 20240109
  Serious: Yes (Other)
  Sender: FDA-Public Use
  Company Number: AR-ORGANON-O2307ARG002333

PATIENT
  Age: 23 Year
  Sex: Female

DRUGS (1)
  1. ETONOGESTREL [Suspect]
     Active Substance: ETONOGESTREL
     Dosage: 1 IMPLANT
     Route: 059

REACTIONS (9)
  - Implant site necrosis [Recovering/Resolving]
  - Surgery [Recovering/Resolving]
  - Implant site discolouration [Unknown]
  - Peripheral swelling [Unknown]
  - Implant site haematoma [Unknown]
  - Swelling [Unknown]
  - Implant site bruising [Unknown]
  - Dermatitis [Unknown]
  - Wound [Recovering/Resolving]

NARRATIVE: CASE EVENT DATE: 20231022
